FAERS Safety Report 22317295 (Version 2)
Quarter: 2023Q2

REPORT INFORMATION
  Report Type: Report from Study
  Country: US (occurrence: US)
  Receive Date: 20230515
  Receipt Date: 20230518
  Transmission Date: 20230722
  Serious: No
  Sender: FDA-Public Use
  Company Number: US-002147023-NVSC2023US106813

PATIENT
  Sex: Female
  Weight: 52.608 kg

DRUGS (3)
  1. DICLOFENAC [Suspect]
     Active Substance: DICLOFENAC
     Indication: Psoriatic arthropathy
     Dosage: UNK
     Route: 065
  2. VOLTAREN [Suspect]
     Active Substance: DICLOFENAC SODIUM
     Indication: Psoriatic arthropathy
     Dosage: UNK
     Route: 065
  3. VOLTAREN [Suspect]
     Active Substance: DICLOFENAC SODIUM
     Indication: Psoriasis

REACTIONS (6)
  - Skin exfoliation [Unknown]
  - Fatigue [Unknown]
  - Stress [Unknown]
  - Breath sounds abnormal [Unknown]
  - Pruritus [Unknown]
  - Drug ineffective for unapproved indication [Unknown]
